FAERS Safety Report 11011285 (Version 1)
Quarter: 2015Q2

REPORT INFORMATION
  Report Type: Spontaneous
  Country: US (occurrence: US)
  Receive Date: 20150410
  Receipt Date: 20150410
  Transmission Date: 20150821
  Serious: No
  Sender: FDA-Public Use
  Company Number: US-ELI_LILLY_AND_COMPANY-US201504002014

PATIENT
  Sex: Male

DRUGS (1)
  1. HUMALOG [Suspect]
     Active Substance: INSULIN LISPRO
     Indication: TYPE 2 DIABETES MELLITUS
     Dosage: 40 U, QD
     Route: 065
     Dates: start: 2013

REACTIONS (6)
  - Drug ineffective [Unknown]
  - Abdominal pain upper [Unknown]
  - Vision blurred [Not Recovered/Not Resolved]
  - Incorrect product storage [Unknown]
  - Dizziness [Unknown]
  - Blood glucose increased [Unknown]
